FAERS Safety Report 25163914 (Version 1)
Quarter: 2025Q2

REPORT INFORMATION
  Report Type: Spontaneous
  Country: US (occurrence: None)
  Receive Date: 20250405
  Receipt Date: 20250405
  Transmission Date: 20250717
  Serious: Yes (Life-Threatening, Hospitalization, Other)
  Sender: APDM Pharmaceuticals
  Company Number: US-APDM-000001

PATIENT
  Age: 68 Year
  Sex: Male

DRUGS (1)
  1. TRAMADOL HYDROCHLORIDE [Suspect]
     Active Substance: TRAMADOL HYDROCHLORIDE
     Indication: Back pain
     Dosage: DOSE ESCALATED TO 50 MG EVERY 6 HOURS.
     Route: 065

REACTIONS (3)
  - Hypoglycaemia [Recovered/Resolved]
  - Encephalopathy [Recovering/Resolving]
  - Respiratory failure [Recovering/Resolving]
